FAERS Safety Report 23786533 (Version 1)
Quarter: 2024Q2

REPORT INFORMATION
  Report Type: Spontaneous
  Country: US (occurrence: US)
  Receive Date: 20240426
  Receipt Date: 20240426
  Transmission Date: 20240716
  Serious: Yes (Hospitalization)
  Sender: FDA-Public Use
  Company Number: US-AMGEN-USASP2024081372

PATIENT
  Sex: Male

DRUGS (1)
  1. PROLIA [Suspect]
     Active Substance: DENOSUMAB
     Indication: Product used for unknown indication
     Dosage: UNK
     Route: 065

REACTIONS (6)
  - Nephropathy [Recovered/Resolved]
  - Myocardial infarction [Recovered/Resolved]
  - Vision blurred [Not Recovered/Not Resolved]
  - Product storage error [Unknown]
  - Intercepted product administration error [Unknown]
  - Asthenia [Unknown]
